FAERS Safety Report 9063474 (Version 1)
Quarter: 2013Q1

REPORT INFORMATION
  Report Type: Report from Study
  Country: US (occurrence: US)
  Receive Date: 20130131
  Receipt Date: 20130131
  Transmission Date: 20140127
  Serious: No
  Sender: FDA-Public Use
  Company Number: US-ABBOTT-12P-163-1009483-00

PATIENT
  Age: 58 Year
  Sex: Female

DRUGS (18)
  1. HUMIRA [Suspect]
     Indication: CROHN^S DISEASE
     Dosage: LOADING DOSE
     Route: 058
     Dates: start: 20121114
  2. ZOFRAN [Concomitant]
     Indication: PRODUCT USED FOR UNKNOWN INDICATION
  3. JINTELLI [Concomitant]
     Indication: HOT FLUSH
     Dosage: DAILY
  4. PROPRANOLOL [Concomitant]
     Indication: MITRAL VALVE PROLAPSE
     Dosage: DAILY
  5. ASA [Concomitant]
     Indication: PRODUCT USED FOR UNKNOWN INDICATION
     Dosage: DAILY
  6. TRAZODONE [Concomitant]
     Indication: INSOMNIA
     Dosage: DAILY
  7. GELNIQUE [Concomitant]
     Indication: URINARY INCONTINENCE
     Route: 061
  8. ZANAFLEX [Concomitant]
     Indication: MUSCLE RELAXANT THERAPY
     Dosage: 1 MCG AND 6 MCG AT BEDTIME
  9. KLONOPIN [Concomitant]
     Indication: FEELING OF RELAXATION
     Dosage: 0.5MG IN AFTERNOON AND 1MG AT BEDTIME
  10. ELMIRON [Concomitant]
     Indication: URINARY TRACT DISORDER
     Dosage: 2-100MG TABLETS TWICE A DAY
  11. SAVELLA [Concomitant]
     Indication: FIBROMYALGIA
  12. ASACOL [Concomitant]
     Indication: COLITIS
     Dosage: 2-800MG
  13. MAGNESIUM [Concomitant]
     Indication: PRODUCT USED FOR UNKNOWN INDICATION
  14. VITAMIN D [Concomitant]
     Indication: PRODUCT USED FOR UNKNOWN INDICATION
     Dosage: 1000 IU DAILY
  15. B-12 [Concomitant]
     Indication: PRODUCT USED FOR UNKNOWN INDICATION
     Route: 060
  16. FENTANYL [Concomitant]
     Indication: PAIN
  17. ENDOCET [Concomitant]
     Indication: TORTICOLLIS
     Dosage: 10-325 MG
  18. DYSPORT [Concomitant]
     Indication: MUSCLE TIGHTNESS

REACTIONS (1)
  - Hypoaesthesia [Recovered/Resolved]
